FAERS Safety Report 14035478 (Version 3)
Quarter: 2017Q4

REPORT INFORMATION
  Report Type: Spontaneous
  Country: HU (occurrence: HU)
  Receive Date: 20171003
  Receipt Date: 20171101
  Transmission Date: 20180321
  Serious: Yes (Death, Hospitalization)
  Sender: FDA-Public Use
  Company Number: HU-PFIZER INC-2017425156

PATIENT
  Age: 80 Year
  Sex: Male

DRUGS (7)
  1. XALKORI [Suspect]
     Active Substance: CRIZOTINIB
     Dosage: 250 MG, 1X/DAY
     Route: 048
     Dates: start: 20170810, end: 20170905
  2. POTASSIUM [Concomitant]
     Active Substance: POTASSIUM
  3. FRAXIPARIN [Concomitant]
     Active Substance: NADROPARIN CALCIUM
  4. FUROSEMIDE. [Concomitant]
     Active Substance: FUROSEMIDE
  5. XALKORI [Suspect]
     Active Substance: CRIZOTINIB
     Indication: LUNG ADENOCARCINOMA
     Dosage: 250 MG, 2X/DAY
     Route: 048
     Dates: start: 20170630
  6. AUGMENTIN [Concomitant]
     Active Substance: AMOXICILLIN\CLAVULANATE POTASSIUM
  7. CAVINTON [Concomitant]
     Active Substance: VINPOCETINE

REACTIONS (8)
  - Face oedema [Unknown]
  - Visual impairment [Recovered/Resolved]
  - Dyspnoea [Unknown]
  - Pyrexia [Unknown]
  - Cardiac failure [Unknown]
  - Dehydration [Unknown]
  - Death [Fatal]
  - Diarrhoea [Recovered/Resolved]

NARRATIVE: CASE EVENT DATE: 2017
